FAERS Safety Report 10468371 (Version 2)
Quarter: 2014Q3

REPORT INFORMATION
  Report Type: Spontaneous
  Country: US (occurrence: US)
  Receive Date: 20140922
  Receipt Date: 20140922
  Transmission Date: 20150326
  Serious: No
  Sender: FDA-Public Use
  Company Number: US-ALLERGAN-1414585US

PATIENT
  Sex: Female

DRUGS (2)
  1. LASTACAFT [Suspect]
     Active Substance: ALCAFTADINE
     Indication: CONJUNCTIVITIS ALLERGIC
     Dosage: 2 GTT, QD
     Route: 047
     Dates: start: 20140512, end: 20140514
  2. SYNTHROID [Suspect]
     Active Substance: LEVOTHYROXINE SODIUM
     Indication: HYPOTHYROIDISM

REACTIONS (2)
  - Dizziness [Unknown]
  - Nausea [Unknown]
